FAERS Safety Report 7807771-2 (Version None)
Quarter: 2011Q4

REPORT INFORMATION
  Report Type: 
  Country: None (occurrence: None)
  Receive Date: 20111011
  Receipt Date: 20111005
  Transmission Date: 20120403
  Serious: Yes (Life-Threatening, Hospitalization)
  Sender: FDA-Public Use
  Company Number: US-ASTRAZENECA-2010SE41533

PATIENT
  Age: 65 Year
  Sex: Female

DRUGS (9)
  1. GLUCOPHAGE [Concomitant]
  2. LASIX [Concomitant]
  3. POTASSIUM [Concomitant]
  4. SYMBICORT [Suspect]
     Indication: ASTHMA
     Dosage: 160/4.5 TWO PUFFS TWICE A DAY
     Route: 055
     Dates: start: 20080101
  5. ENALAPRIL MALEATE [Concomitant]
  6. VERAPAMIL [Concomitant]
  7. ALBUTEROL [Concomitant]
     Dosage: PRN
  8. SYMBICORT [Suspect]
     Indication: CHRONIC OBSTRUCTIVE PULMONARY DISEASE
     Dosage: 160/4.5 TWO PUFFS TWICE A DAY
     Route: 055
     Dates: start: 20080101
  9. GENERIC CELEXA [Concomitant]

REACTIONS (4)
  - CARDIAC FAILURE CONGESTIVE [None]
  - PNEUMONIA [None]
  - MALAISE [None]
  - RESPIRATORY FAILURE [None]
